FAERS Safety Report 6299366-X (Version None)
Quarter: 2009Q3

REPORT INFORMATION
  Report Type: 
  Country: None (occurrence: None)
  Receive Date: 20090806
  Receipt Date: 20090730
  Transmission Date: 20100115
  Serious: Yes (Life-Threatening)
  Sender: FDA-Public Use
  Company Number: GB-ROCHE-646983

PATIENT
  Sex: Female

DRUGS (2)
  1. CAPECITABINE [Suspect]
     Indication: COLON CANCER
     Dosage: DOSE AS PER PROTOCOL: 1250 MG/M2 TWICE DAILY FOR 14 DAYS.
     Route: 048
     Dates: start: 20090714
  2. BEVACIZUMAB [Suspect]
     Indication: COLON CANCER
     Dosage: DOSE AS PER PROTOCOL: 7.5 MG/KG EVERY THREE WEEKS. REPORTED AS 625.
     Route: 042
     Dates: start: 20090714

REACTIONS (1)
  - VENTRICULAR FIBRILLATION [None]
